FAERS Safety Report 18595902 (Version 1)
Quarter: 2020Q4

REPORT INFORMATION
  Report Type: Spontaneous
  Country: US (occurrence: US)
  Receive Date: 20201209
  Receipt Date: 20201209
  Transmission Date: 20210114
  Serious: No
  Sender: FDA-Public Use
  Company Number: US-SUPERNUS PHARMACEUTICALS, INC.-2020SUP00104

PATIENT
  Sex: Female
  Weight: 126.64 kg

DRUGS (26)
  1. TROKENDI XR [Suspect]
     Active Substance: TOPIRAMATE
     Dosage: 200 MG
     Route: 048
     Dates: start: 2019, end: 2019
  2. TROKENDI XR [Suspect]
     Active Substance: TOPIRAMATE
     Dosage: 100 MG, 1X/DAY
     Route: 048
  3. AJOVY [Concomitant]
     Active Substance: FREMANEZUMAB-VFRM
     Dosage: UNK
  4. BOTOX [Concomitant]
     Active Substance: ONABOTULINUMTOXINA
     Dosage: EVERY 3 MONTHS
     Dates: end: 2019
  5. BOTOX [Concomitant]
     Active Substance: ONABOTULINUMTOXINA
     Dosage: EVERY 3 MONTHS
     Dates: start: 2019
  6. MIGRANOL [Concomitant]
     Dosage: ^ALLOW TO USE IT 2X/WEEK, BUT DOESNT ALWAYS TAK IT 2X/WEEK^
     Dates: start: 2019
  7. COENZYME Q10 [Concomitant]
     Active Substance: DIETARY SUPPLEMENT\UBIDECARENONE
     Dosage: UNK
     Dates: start: 2019
  8. MECLIZINE [Concomitant]
     Active Substance: MECLIZINE HYDROCHLORIDE
     Dosage: UNK
     Dates: start: 2019
  9. TROKENDI XR [Suspect]
     Active Substance: TOPIRAMATE
     Dosage: UNK
  10. MAGNESIUM [Concomitant]
     Active Substance: MAGNESIUM
     Dosage: UNK
     Dates: end: 2019
  11. MAGNESIUM [Concomitant]
     Active Substance: MAGNESIUM
     Dosage: UNK
     Dates: start: 2019
  12. TROKENDI XR [Suspect]
     Active Substance: TOPIRAMATE
     Dosage: UNK
     Route: 048
     Dates: start: 201901, end: 2019
  13. MIGRANOL [Concomitant]
     Dosage: ^ALLOW TO USE IT 2X/WEEK, BUT DOESNT ALWAYS TAK IT 2X/WEEK^
     Dates: end: 2019
  14. VITAMIN B2 [Concomitant]
     Active Substance: RIBOFLAVIN
     Dosage: UNK
     Dates: end: 2019
  15. VITAMIN B2 [Concomitant]
     Active Substance: RIBOFLAVIN
     Dosage: UNK
     Dates: start: 2019
  16. TROKENDI XR [Suspect]
     Active Substance: TOPIRAMATE
     Indication: MIGRAINE
     Dosage: ^SAMPLE PACKS^
     Route: 048
  17. TROKENDI XR [Suspect]
     Active Substance: TOPIRAMATE
     Dosage: 100 MG
     Route: 048
     Dates: start: 2019, end: 2019
  18. ATENOLOL. [Concomitant]
     Active Substance: ATENOLOL
  19. COENZYME Q10 [Concomitant]
     Active Substance: DIETARY SUPPLEMENT\UBIDECARENONE
     Dosage: 300 MG
     Dates: end: 2019
  20. MULTIVITAMIN [Concomitant]
     Active Substance: VITAMINS
     Dosage: UNK
     Dates: start: 2019
  21. METFORMIN [Concomitant]
     Active Substance: METFORMIN HYDROCHLORIDE
  22. TROKENDI XR [Suspect]
     Active Substance: TOPIRAMATE
     Dosage: ^INCREASED DOSES^
     Route: 048
     Dates: start: 2019, end: 2019
  23. MULTIVITAMIN [Concomitant]
     Active Substance: VITAMINS
     Dosage: UNK
     Dates: end: 2019
  24. MULBERRY LEAF EXTRACT [Concomitant]
     Dosage: UNK
     Dates: end: 2019
  25. MECLIZINE [Concomitant]
     Active Substance: MECLIZINE HYDROCHLORIDE
     Dosage: UNK
     Dates: end: 2019
  26. MULBERRY LEAF EXTRACT [Concomitant]
     Dosage: UNK
     Dates: start: 2019

REACTIONS (10)
  - Feeling abnormal [Recovered/Resolved]
  - Memory impairment [Not Recovered/Not Resolved]
  - Herpes zoster [Recovering/Resolving]
  - Therapeutic product effect incomplete [Not Recovered/Not Resolved]
  - Hypersensitivity [Recovered/Resolved]
  - Urticaria [Recovered/Resolved]
  - Sinus disorder [Unknown]
  - Dry eye [Unknown]
  - Eye pain [Unknown]
  - Anxiety [Unknown]

NARRATIVE: CASE EVENT DATE: 2019
